FAERS Safety Report 8999294 (Version 2)
Quarter: 2013Q1

REPORT INFORMATION
  Report Type: Spontaneous
  Country: US (occurrence: US)
  Receive Date: 20130103
  Receipt Date: 20130305
  Transmission Date: 20140127
  Serious: Yes (Hospitalization)
  Sender: FDA-Public Use
  Company Number: US-PFIZER INC-2012331385

PATIENT
  Age: 63 Year
  Sex: Male
  Weight: 67.12 kg

DRUGS (17)
  1. INLYTA [Suspect]
     Indication: RENAL CANCER
     Dosage: 5 MG, EVERY 12 HOURS
     Route: 048
     Dates: start: 20120905, end: 20121222
  2. RISPERDAL [Concomitant]
     Dosage: 0.25 MG, 2X/DAY
     Route: 048
  3. HYDRALAZINE [Concomitant]
     Dosage: 100 MG, 3X/DAY
     Route: 048
  4. LIPITOR [Concomitant]
     Dosage: 10 MG, QHS
     Route: 048
  5. VITAMIN D3 [Concomitant]
     Dosage: UNK
     Route: 048
  6. ALOES [Concomitant]
     Route: 048
  7. NORVASC [Concomitant]
     Dosage: 5 MG, 2X/DAY
     Route: 048
  8. PEPCID [Concomitant]
     Dosage: 20 MG, 2X/DAY
  9. NITROGLYCERIN [Concomitant]
     Dosage: 0.4 MG, AS NEEDED
     Route: 060
  10. PROVENTIL INHALER [Concomitant]
     Dosage: UNK
  11. HUMALOG [Concomitant]
     Dosage: UNK
     Route: 058
  12. CO-Q-10 [Concomitant]
     Dosage: 100 MG, 1X/DAY
     Route: 048
  13. KEPPRA [Concomitant]
     Dosage: 500 MG, 2X/DAY
     Route: 048
  14. SYNTHROID [Concomitant]
     Dosage: 75 MG, 1X/DAY
  15. CELEXA [Concomitant]
     Dosage: 40 MG, 1X/DAY
     Route: 048
  16. FOLIC ACID [Concomitant]
     Dosage: UNK
     Route: 048
  17. LANTUS [Concomitant]
     Dosage: UNK
     Route: 058

REACTIONS (6)
  - Headache [Unknown]
  - Balance disorder [Unknown]
  - Depressed level of consciousness [Unknown]
  - Cerebrovascular accident [Unknown]
  - Mental status changes [Recovered/Resolved]
  - Hallucination, visual [Recovered/Resolved]
